FAERS Safety Report 16411642 (Version 4)
Quarter: 2020Q1

REPORT INFORMATION
  Report Type: Report from Study
  Country: ES (occurrence: ES)
  Receive Date: 20190610
  Receipt Date: 20200228
  Transmission Date: 20200409
  Serious: Yes (Hospitalization)
  Sender: FDA-Public Use
  Company Number: ES-JNJFOC-20190607228

PATIENT
  Age: 56 Year
  Sex: Female
  Weight: 54.5 kg

DRUGS (18)
  1. INFLIXIMAB, RECOMBINANT UNSPECIFIED [Concomitant]
     Indication: CROHN^S DISEASE
     Route: 065
     Dates: start: 201802, end: 20181119
  2. METRONIDAZOLE. [Concomitant]
     Active Substance: METRONIDAZOLE
     Indication: CROHN^S DISEASE
     Route: 065
     Dates: start: 20171019, end: 20171126
  3. BISOPROLOL [Concomitant]
     Active Substance: BISOPROLOL
     Route: 065
  4. FUROSEMIDE. [Concomitant]
     Active Substance: FUROSEMIDE
     Route: 065
  5. CIPROFLOXACIN. [Concomitant]
     Active Substance: CIPROFLOXACIN
     Indication: CROHN^S DISEASE
     Route: 065
     Dates: start: 20171019, end: 20171026
  6. MASTICAL D [Concomitant]
     Route: 065
     Dates: start: 2017
  7. USTEKINUMAB [Suspect]
     Active Substance: USTEKINUMAB
     Route: 058
     Dates: start: 20190617
  8. METHOTREXATE. [Concomitant]
     Active Substance: METHOTREXATE
     Indication: CROHN^S DISEASE
     Route: 065
     Dates: start: 20180427
  9. ACFOL [Concomitant]
     Active Substance: FOLIC ACID
     Route: 065
     Dates: start: 20180427
  10. AZATHIOPRINE. [Concomitant]
     Active Substance: AZATHIOPRINE
     Indication: CROHN^S DISEASE
     Route: 065
     Dates: start: 20180112, end: 201801
  11. ARCOXIA [Concomitant]
     Active Substance: ETORICOXIB
     Indication: TENDONITIS
     Route: 065
     Dates: start: 20190730, end: 20190806
  12. CIPROFLOXACIN. [Concomitant]
     Active Substance: CIPROFLOXACIN
     Indication: ABDOMINAL ABSCESS
     Route: 065
     Dates: start: 20190805, end: 20190815
  13. AUGMENTIN [Concomitant]
     Active Substance: AMOXICILLIN\CLAVULANATE POTASSIUM
     Indication: CLOSTRIDIUM DIFFICILE INFECTION
     Route: 065
     Dates: start: 20190415, end: 20190424
  14. USTEKINUMAB [Suspect]
     Active Substance: USTEKINUMAB
     Indication: CROHN^S DISEASE
     Route: 042
     Dates: start: 20190412
  15. BUDESONIDE. [Concomitant]
     Active Substance: BUDESONIDE
     Indication: CROHN^S DISEASE
     Route: 065
     Dates: start: 20171201, end: 20180303
  16. PARACETAMOL [Concomitant]
     Active Substance: ACETAMINOPHEN
     Indication: CROHN^S DISEASE
     Route: 065
     Dates: start: 2015
  17. ZALDIAR [Concomitant]
     Active Substance: ACETAMINOPHEN\TRAMADOL HYDROCHLORIDE
     Indication: HEADACHE
     Route: 065
     Dates: start: 20190116, end: 20190411
  18. ZALDIAR [Concomitant]
     Active Substance: ACETAMINOPHEN\TRAMADOL HYDROCHLORIDE
     Route: 065
     Dates: start: 20190714

REACTIONS (1)
  - Temporal lobe epilepsy [Recovering/Resolving]

NARRATIVE: CASE EVENT DATE: 20190604
